FAERS Safety Report 4603490-4 (Version None)
Quarter: 2005Q2

REPORT INFORMATION
  Report Type: 
  Country: None (occurrence: None)
  Receive Date: 20050223
  Receipt Date: 20041208
  Transmission Date: 20051028
  Serious: No
  Sender: FDA-Public Use
  Company Number: 210964

PATIENT
  Age: 55 Year
  Sex: Male
  Weight: 110.2 kg

DRUGS (7)
  1. RAPTIVA [Suspect]
     Indication: PSORIASIS
     Dosage: 1.1 ML, SUBCUTAENOUS
     Route: 058
     Dates: start: 20040616
  2. GLUCOPHAGE [Concomitant]
  3. AMARYL [Concomitant]
  4. ASPIRIN [Concomitant]
  5. ZESTRIL [Concomitant]
  6. FOLIC ACID [Concomitant]
  7. LIPITOR [Concomitant]

REACTIONS (1)
  - PSORIASIS [None]
